FAERS Safety Report 11499481 (Version 3)
Quarter: 2022Q1

REPORT INFORMATION
  Report Type: Spontaneous
  Country: CA (occurrence: None)
  Receive Date: 20150914
  Receipt Date: 20220224
  Transmission Date: 20220423
  Serious: Yes (Other)
  Sender: FDA-Public Use
  Company Number: CA-ROCHE-1632758

PATIENT
  Age: 32 Year
  Sex: Female

DRUGS (21)
  1. DIAZEPAM [Suspect]
     Active Substance: DIAZEPAM
     Indication: Product used for unknown indication
     Route: 040
  2. DIAZEPAM [Suspect]
     Active Substance: DIAZEPAM
     Route: 042
  3. ISOFLURANE [Suspect]
     Active Substance: ISOFLURANE
     Indication: Product used for unknown indication
     Route: 040
  4. LIDOCAINE [Suspect]
     Active Substance: LIDOCAINE
     Indication: Product used for unknown indication
     Route: 061
  5. LORAZEPAM [Suspect]
     Active Substance: LORAZEPAM
     Indication: Product used for unknown indication
     Route: 040
  6. LORAZEPAM [Suspect]
     Active Substance: LORAZEPAM
     Route: 042
  7. PARALDEHYDE [Suspect]
     Active Substance: PARALDEHYDE
     Indication: Product used for unknown indication
     Route: 065
  8. PARALDEHYDE [Suspect]
     Active Substance: PARALDEHYDE
     Route: 065
  9. PHENOBARBITAL [Suspect]
     Active Substance: PHENOBARBITAL
     Indication: Product used for unknown indication
     Route: 042
  10. PHENOBARBITAL [Suspect]
     Active Substance: PHENOBARBITAL
     Route: 042
  11. PHENOBARBITAL [Suspect]
     Active Substance: PHENOBARBITAL
     Route: 065
  12. PHENYTOIN SODIUM [Suspect]
     Active Substance: PHENYTOIN SODIUM
     Indication: Product used for unknown indication
     Route: 065
  13. PHENYTOIN SODIUM [Suspect]
     Active Substance: PHENYTOIN SODIUM
     Route: 042
  14. VALPROIC ACID [Suspect]
     Active Substance: VALPROIC ACID
     Indication: Product used for unknown indication
     Route: 065
  15. VALPROIC ACID [Suspect]
     Active Substance: VALPROIC ACID
     Route: 065
  16. VALPROIC ACID [Suspect]
     Active Substance: VALPROIC ACID
     Route: 065
  17. VALPROIC ACID [Suspect]
     Active Substance: VALPROIC ACID
     Route: 048
  18. FORANE [Suspect]
     Active Substance: ISOFLURANE
     Indication: Product used for unknown indication
     Route: 065
  19. LORAZEPAM [Suspect]
     Active Substance: LORAZEPAM
     Indication: Product used for unknown indication
     Route: 042
  20. PHENYTOIN [Suspect]
     Active Substance: PHENYTOIN
     Indication: Product used for unknown indication
     Route: 065
  21. DOPAMINE HYDROCHLORIDE [Concomitant]
     Active Substance: DOPAMINE HYDROCHLORIDE
     Indication: Product used for unknown indication
     Route: 065

REACTIONS (3)
  - Drug ineffective [Unknown]
  - Hypotension [Recovered/Resolved]
  - Status epilepticus [Not Recovered/Not Resolved]
